FAERS Safety Report 9986284 (Version 1)
Quarter: 2014Q1

REPORT INFORMATION
  Report Type: Spontaneous
  Country: US (occurrence: US)
  Receive Date: 20140307
  Receipt Date: 20140307
  Transmission Date: 20141002
  Serious: No
  Sender: FDA-Public Use
  Company Number: US-ABBVIE-13P-163-1086176-00

PATIENT
  Age: 68 Year
  Sex: Male

DRUGS (2)
  1. HUMIRA [Suspect]
     Indication: GRANULOMA ANNULARE
     Dates: start: 2011, end: 2011
  2. LYRICA [Concomitant]
     Indication: PRODUCT USED FOR UNKNOWN INDICATION

REACTIONS (4)
  - Temporal arteritis [Not Recovered/Not Resolved]
  - Herpes zoster [Recovered/Resolved]
  - Localised infection [Unknown]
  - Rash pustular [Unknown]
